FAERS Safety Report 21392363 (Version 1)
Quarter: 2022Q3

REPORT INFORMATION
  Report Type: Spontaneous
  Country: US (occurrence: None)
  Receive Date: 20220928
  Receipt Date: 20220928
  Transmission Date: 20221027
  Serious: No
  Sender: FDA-Public Use
  Company Number: None

PATIENT
  Sex: Male
  Weight: 103.5 kg

DRUGS (7)
  1. STRATTERA [Suspect]
     Active Substance: ATOMOXETINE HYDROCHLORIDE
     Indication: Attention deficit hyperactivity disorder
     Dosage: OTHER QUANTITY : 1 CAPSULE(S);?FREQUENCY : DAILY;?
     Route: 048
  2. TOPIRAMATE [Concomitant]
     Active Substance: TOPIRAMATE
  3. BUPROPION [Concomitant]
     Active Substance: BUPROPION
  4. DESCOVY [Concomitant]
     Active Substance: EMTRICITABINE\TENOFOVIR ALAFENAMIDE FUMARATE
  5. TADALAFIL [Concomitant]
     Active Substance: TADALAFIL
  6. VYVANSE [Concomitant]
     Active Substance: LISDEXAMFETAMINE DIMESYLATE
  7. COLLAGEN [Concomitant]
     Active Substance: COLLAGEN

REACTIONS (8)
  - Drug ineffective [None]
  - Loss of employment [None]
  - Job dissatisfaction [None]
  - Disturbance in attention [None]
  - Poor personal hygiene [None]
  - Psychomotor skills impaired [None]
  - Weight increased [None]
  - Speech disorder [None]
